FAERS Safety Report 5852585-6 (Version None)
Quarter: 2008Q3

REPORT INFORMATION
  Report Type: 
  Country: None (occurrence: None)
  Receive Date: 20080819
  Receipt Date: 20080808
  Transmission Date: 20090109
  Serious: Yes (Congenital Anomaly)
  Sender: FDA-Public Use
  Company Number: 1000000444

PATIENT
  Sex: Male

DRUGS (3)
  1. CARBAMAZEPINE [Suspect]
     Indication: CONVULSION
     Dosage: 1200 MG
  2. TOPIRAMATE [Suspect]
     Indication: CONVULSION
     Dosage: 500 MG
  3. CLOBAZAM [Suspect]
     Indication: CONVULSION
     Dosage: 10 MG

REACTIONS (22)
  - ANAL ATRESIA [None]
  - BODY DYSMORPHIC DISORDER [None]
  - CARDIAC SEPTAL DEFECT [None]
  - CLEFT LIP [None]
  - CLEFT PALATE [None]
  - CONGENITAL ANOMALY [None]
  - CONGENITAL HIP DEFORMITY [None]
  - CYST [None]
  - FOOT DEFORMITY [None]
  - HAEMANGIOMA [None]
  - HERNIA [None]
  - HIP DYSPLASIA [None]
  - HYDROCELE [None]
  - HYDRONEPHROSIS [None]
  - HYPOSPADIAS [None]
  - MATERNAL DRUGS AFFECTING FOETUS [None]
  - MULTIPLE CONGENITAL ABNORMALITIES [None]
  - PATENT DUCTUS ARTERIOSUS [None]
  - PLAGIOCEPHALY [None]
  - PYLORIC STENOSIS [None]
  - TRACHEO-OESOPHAGEAL FISTULA [None]
  - VESICOURETERIC REFLUX [None]
